FAERS Safety Report 16720977 (Version 2)
Quarter: 2019Q4

REPORT INFORMATION
  Report Type: Spontaneous
  Country: JP (occurrence: JP)
  Receive Date: 20190820
  Receipt Date: 20191010
  Transmission Date: 20200122
  Serious: Yes (Other)
  Sender: FDA-Public Use
  Company Number: JP-AMGEN-JPNSP2019132171

PATIENT

DRUGS (4)
  1. CYRAMZA [Concomitant]
     Active Substance: RAMUCIRUMAB
     Indication: NEOPLASM MALIGNANT
     Dosage: UNK
     Route: 042
  2. G-LASTA [Suspect]
     Active Substance: PEGFILGRASTIM
     Indication: COLONY STIMULATING FACTOR THERAPY
     Dosage: UNK
     Route: 058
  3. DOCETAXEL. [Concomitant]
     Active Substance: DOCETAXEL
     Indication: NEOPLASM MALIGNANT
     Dosage: UNK
     Route: 042
  4. GRAN [Suspect]
     Active Substance: FILGRASTIM
     Indication: BLOOD COUNT ABNORMAL
     Dosage: UNK
     Route: 065

REACTIONS (1)
  - Colony stimulating factor therapy [Unknown]
